FAERS Safety Report 8850334 (Version 2)
Quarter: 2013Q1

REPORT INFORMATION
  Report Type: Spontaneous
  Country: US (occurrence: US)
  Receive Date: 20121019
  Receipt Date: 20130110
  Transmission Date: 20140127
  Serious: Yes (Other)
  Sender: FDA-Public Use
  Company Number: US-PFIZER INC-2012257431

PATIENT
  Age: 53 Year
  Sex: Female
  Weight: 163 kg

DRUGS (5)
  1. PREMARIN [Suspect]
     Indication: HORMONE REPLACEMENT THERAPY
     Dosage: 0.3 MG, 1X/DAY
     Route: 048
  2. ALLOPURINOL [Concomitant]
     Indication: GOUT
     Dosage: 300 MG, EVERY OTHER DAY
     Route: 048
  3. COLCRYS [Concomitant]
     Indication: GOUT
     Dosage: 0.6 MG, EVERY OTHER DAY
  4. CLONIDINE [Concomitant]
     Dosage: 0.4 MG, 1X/DAY
  5. HYDROCHLOROTHIAZIDE [Concomitant]
     Dosage: 50 MG, 1X/DAY
     Route: 048

REACTIONS (1)
  - Hypertension [Unknown]
